FAERS Safety Report 9001471 (Version 2)
Quarter: 2013Q1

REPORT INFORMATION
  Report Type: Spontaneous
  Country: FR (occurrence: FR)
  Receive Date: 20130107
  Receipt Date: 20130219
  Transmission Date: 20140127
  Serious: Yes (Other)
  Sender: FDA-Public Use
  Company Number: PHHY2013FR001362

PATIENT
  Age: 34 Year
  Sex: Female

DRUGS (1)
  1. ALPRAZOLAM SANDOZ [Suspect]

REACTIONS (3)
  - Drug diversion [Unknown]
  - Drug dependence [Not Recovered/Not Resolved]
  - Intentional overdose [Unknown]
